FAERS Safety Report 18050186 (Version 3)
Quarter: 2020Q4

REPORT INFORMATION
  Report Type: Spontaneous
  Country: AR (occurrence: AR)
  Receive Date: 20200721
  Receipt Date: 20201222
  Transmission Date: 20210113
  Serious: Yes (Hospitalization)
  Sender: FDA-Public Use
  Company Number: AR-PFIZER INC-2020275139

PATIENT
  Age: 57 Year
  Sex: Female

DRUGS (2)
  1. SUTENT [Suspect]
     Active Substance: SUNITINIB MALATE
     Indication: RENAL CANCER METASTATIC
     Dosage: 37.5 MG, (12.5 MG AND 25 MG) DAILY (STRENGTH: 12.5 MG)
     Dates: start: 20171030
  2. SUTENT [Suspect]
     Active Substance: SUNITINIB MALATE
     Dosage: 37.5 MG, (12.5 MG AND 25 MG) DAILY (STRENGTH: 25 MG)
     Dates: start: 20171030

REACTIONS (1)
  - Localised infection [Unknown]
